FAERS Safety Report 13507120 (Version 1)
Quarter: 2017Q2

REPORT INFORMATION
  Report Type: Spontaneous
  Country: US (occurrence: US)
  Receive Date: 20170502
  Receipt Date: 20170502
  Transmission Date: 20170830
  Serious: No
  Sender: FDA-Public Use
  Company Number: None

PATIENT
  Age: 64 Year
  Sex: Female
  Weight: 61.65 kg

DRUGS (4)
  1. LEVOTHYROXINE. [Concomitant]
     Active Substance: LEVOTHYROXINE
  2. LOW DOSE ASPIRIN [Concomitant]
     Active Substance: ASPIRIN
  3. FLECAINIDE [Concomitant]
     Active Substance: FLECAINIDE
  4. ELIQUIS [Suspect]
     Active Substance: APIXABAN
     Indication: ATRIAL FIBRILLATION
     Dosage: ?          QUANTITY:60 TABLET(S);?
     Route: 048
     Dates: start: 20170418

REACTIONS (3)
  - Feeling abnormal [None]
  - Tremor [None]
  - Wrong technique in product usage process [None]

NARRATIVE: CASE EVENT DATE: 20170420
